FAERS Safety Report 9771909 (Version 2)
Quarter: 2014Q1

REPORT INFORMATION
  Report Type: Spontaneous
  Country: JP (occurrence: JP)
  Receive Date: 20131219
  Receipt Date: 20140122
  Transmission Date: 20141002
  Serious: Yes (Other)
  Sender: FDA-Public Use
  Company Number: JP-ASTRAZENECA-2013SE90965

PATIENT
  Age: 31 Year
  Sex: Male
  Weight: 81 kg

DRUGS (2)
  1. NEXIUM [Suspect]
     Indication: GASTRIC ULCER
     Route: 048
     Dates: start: 20131203, end: 20131204
  2. UNKNOWN [Concomitant]
     Indication: GASTRIC ULCER
     Route: 048
     Dates: start: 20131203, end: 20131204

REACTIONS (1)
  - Toxic skin eruption [Recovered/Resolved]
